FAERS Safety Report 19552564 (Version 1)
Quarter: 2021Q3

REPORT INFORMATION
  Report Type: Spontaneous
  Country: US (occurrence: US)
  Receive Date: 20210714
  Receipt Date: 20210714
  Transmission Date: 20211014
  Serious: Yes (Other)
  Sender: FDA-Public Use
  Company Number: US-SA-2017SA268620

PATIENT
  Age: 59 Year
  Sex: Female
  Weight: 68.03 kg

DRUGS (16)
  1. ALPRAZOLAM. [Concomitant]
     Active Substance: ALPRAZOLAM
     Dosage: TAKE ONE?HALF TABLET EVERY NIGHT AT BEDTIME AS NEEDED
     Route: 048
  2. CHLORHEXIDINE GLUCONATE. [Concomitant]
     Active Substance: CHLORHEXIDINE GLUCONATE
     Indication: ORAL PAIN
     Dosage: SWISH AND SPIT 1 TABLESPOON ORALLY 3 TIMES DAILY
     Route: 048
     Dates: start: 20070202, end: 20080103
  3. PROCHLORPERAZINE MALEATE. [Concomitant]
     Active Substance: PROCHLORPERAZINE MALEATE
     Indication: NAUSEA
     Dosage: TAKE 1 TABLET ORALLY EVERY 6 HOURS AS NEEDED
     Route: 048
     Dates: start: 20080323
  4. CYCLOBENZAPRINE. [Concomitant]
     Active Substance: CYCLOBENZAPRINE
     Dosage: 10 MG, HS
     Route: 048
     Dates: start: 20070419, end: 20070519
  5. ACYCLOVIR [ACICLOVIR] [Concomitant]
     Active Substance: ACYCLOVIR
     Dosage: TAKE 1 TABLET ORALLY 3 TIMES DAILY FOR 5 DAYS
     Route: 048
     Dates: start: 20070223
  6. WELLBUTRIN [Concomitant]
     Active Substance: BUPROPION HYDROCHLORIDE
     Indication: DEPRESSION
     Dosage: 150 MG, QD
     Route: 065
  7. LORAZEPAM. [Concomitant]
     Active Substance: LORAZEPAM
     Dosage: 1 TABLET ORALLY OR UNDER TONGUE EVERY 4 HOURS AS NEEDED
     Route: 065
     Dates: start: 20070212, end: 20070504
  8. ANZEMET [Concomitant]
     Active Substance: DOLASETRON MESYLATE
     Dosage: TAKE 1 TABLET ORALLY DAILY FOR 6 DAYS AFTER CHEMOTHERAPY TREATMENT
     Route: 048
     Dates: start: 20070227, end: 20070411
  9. NEOSAR [Concomitant]
     Active Substance: CYCLOPHOSPHAMIDE
     Indication: BREAST CANCER FEMALE
     Dosage: UNK
     Route: 065
  10. CHLORHEXIDINE GLUCONATE. [Concomitant]
     Active Substance: CHLORHEXIDINE GLUCONATE
     Dosage: IF MOUTH SORES PRESENT USE EVERY 2 HOURS AS NEEDED
     Route: 048
     Dates: start: 20070202, end: 20080103
  11. TAXOTERE [Suspect]
     Active Substance: DOCETAXEL
     Indication: BREAST CANCER FEMALE
     Dosage: UNK UNK, Q3W
     Route: 042
     Dates: start: 20070323, end: 20070323
  12. TAXOTERE [Suspect]
     Active Substance: DOCETAXEL
     Dosage: UNK UNK, Q3W
     Route: 042
     Dates: start: 20070525, end: 20070525
  13. ADRIAMYCIN [Concomitant]
     Active Substance: DOXORUBICIN HYDROCHLORIDE
     Indication: BREAST CANCER FEMALE
     Dosage: UNK
     Route: 065
  14. NEUPOGEN [Concomitant]
     Active Substance: FILGRASTIM
     Dosage: INJECT 1ML (300MCG) SUBCUTANEOUSLY DAILY FOR 9 DAYS BEGINNING ON 3?1?07 AS DIRECTED ??KEEP REFRIGERA
     Route: 058
     Dates: start: 20070227, end: 20070413
  15. DOXIL [Concomitant]
     Active Substance: DOXORUBICIN HYDROCHLORIDE
     Indication: BREAST CANCER FEMALE
     Dosage: UNK
     Route: 065
  16. ALLEGRA [Concomitant]
     Active Substance: FEXOFENADINE HYDROCHLORIDE
     Dosage: UNK UNK, PRN
     Route: 065

REACTIONS (6)
  - Anxiety [Unknown]
  - Alopecia [Recovering/Resolving]
  - Impaired quality of life [Unknown]
  - Psychological trauma [Unknown]
  - Emotional distress [Unknown]
  - Pain [Unknown]

NARRATIVE: CASE EVENT DATE: 20070415
